FAERS Safety Report 4860412-9 (Version None)
Quarter: 2005Q4

REPORT INFORMATION
  Report Type: 
  Country: None (occurrence: None)
  Receive Date: 20051215
  Receipt Date: 20051206
  Transmission Date: 20060501
  Serious: Yes (Death)
  Sender: FDA-Public Use
  Company Number: 2005022449

PATIENT
  Age: 81 Year
  Sex: Male
  Weight: 54.4316 kg

DRUGS (10)
  1. BEXTRA [Suspect]
     Indication: BACK PAIN
     Dosage: (1 IN 1 D), ORAL
     Route: 048
     Dates: start: 20050118
  2. METAXALONE [Concomitant]
  3. DONEPEZIL HCL [Concomitant]
  4. ALPRAZOLAM [Concomitant]
  5. ASPIRIN [Concomitant]
  6. DIGOXIN [Concomitant]
  7. AMLODIPINE BESYLATE [Concomitant]
  8. QUININE SULFATE [Concomitant]
  9. ESOMEPRAZOLE (ESOMEPRAZOLE) [Concomitant]
  10. SIMVASTATIN [Concomitant]

REACTIONS (2)
  - DYSPEPSIA [None]
  - HEADACHE [None]
